FAERS Safety Report 23552816 (Version 1)
Quarter: 2024Q1

REPORT INFORMATION
  Report Type: Spontaneous
  Country: US (occurrence: None)
  Receive Date: 20240221
  Receipt Date: 20240221
  Transmission Date: 20240410
  Serious: Yes (Hospitalization)
  Sender: FDA-Public Use
  Company Number: None

PATIENT
  Sex: Male

DRUGS (1)
  1. GLEOSTINE [Suspect]
     Active Substance: LOMUSTINE
     Indication: Brain neoplasm malignant
     Dosage: 160MG BY MOUTH??TAKE 4 CAPSULES BY MOUTH ONCE EVERY 6-8 WEEKS AS DIRECTED. (TOTAL DOSE 160MG)?
     Route: 048
     Dates: start: 202312

REACTIONS (1)
  - Influenza [None]
